FAERS Safety Report 20098774 (Version 1)
Quarter: 2021Q4

REPORT INFORMATION
  Report Type: Spontaneous
  Country: US (occurrence: US)
  Receive Date: 20211122
  Receipt Date: 20211122
  Transmission Date: 20220303
  Serious: No
  Sender: FDA-Public Use
  Company Number: US-BAYER-2021A254144

PATIENT
  Sex: Female

DRUGS (2)
  1. ALEVE ARTHRITIS PAIN GEL [Suspect]
     Active Substance: DICLOFENAC SODIUM
     Indication: Sciatica
     Dosage: UNK
     Route: 061
  2. ALEVE [Suspect]
     Active Substance: NAPROXEN SODIUM
     Indication: Sciatica
     Dosage: UNK

REACTIONS (1)
  - Drug effective for unapproved indication [Unknown]
